FAERS Safety Report 22078316 (Version 3)
Quarter: 2023Q2

REPORT INFORMATION
  Report Type: Report from Study
  Country: US (occurrence: None)
  Receive Date: 20230309
  Receipt Date: 20230510
  Transmission Date: 20230721
  Serious: Yes (Other)
  Sender: FDA-Public Use
  Company Number: US-ROCHE-3298887

PATIENT

DRUGS (12)
  1. ATEZOLIZUMAB [Suspect]
     Active Substance: ATEZOLIZUMAB
     Indication: Colon cancer stage III
     Dosage: 2400MG/M2 IV OVER 46 HOURS DAYS 1-3
     Route: 042
     Dates: start: 20230112
  2. ATEZOLIZUMAB [Suspect]
     Active Substance: ATEZOLIZUMAB
     Dosage: 2400MG/M2 IV OVER 46 HOURS DAYS 1-3
     Route: 042
     Dates: start: 20230221
  3. ATEZOLIZUMAB [Suspect]
     Active Substance: ATEZOLIZUMAB
     Dosage: 2400MG/M2 IV OVER 46 HOURS DAYS 1-3
     Route: 042
     Dates: start: 20230321
  4. OXALIPLATIN [Suspect]
     Active Substance: OXALIPLATIN
     Indication: Colon cancer stage III
     Dosage: CYCLES 1-12 CYCLE = 14 DAYS?85MG/M2 IV OVER 2 HOURS ON DAY 1
     Route: 042
     Dates: start: 20230112
  5. OXALIPLATIN [Suspect]
     Active Substance: OXALIPLATIN
     Dosage: CYCLES 1-12 CYCLE = 14 DAYS?85MG/M2 IV OVER 2 HOURS ON DAY 1
     Route: 042
     Dates: start: 20230221
  6. OXALIPLATIN [Suspect]
     Active Substance: OXALIPLATIN
     Dosage: CYCLES 1-12 CYCLE = 14 DAYS?85MG/M2 IV OVER 2 HOURS ON DAY 1
     Route: 042
     Dates: start: 20230321
  7. LEUCOVORIN CALCIUM [Suspect]
     Active Substance: LEUCOVORIN CALCIUM
     Indication: Colon cancer stage III
     Dosage: 400MG/M2 IV OVER 2 AY 1
     Route: 042
     Dates: start: 20230112
  8. LEUCOVORIN CALCIUM [Suspect]
     Active Substance: LEUCOVORIN CALCIUM
     Dosage: 400MG/M2 IV OVER 2 AY 1
     Route: 042
     Dates: start: 20230221
  9. LEUCOVORIN CALCIUM [Suspect]
     Active Substance: LEUCOVORIN CALCIUM
     Dosage: 400MG/M2 IV OVER 2 AY 1
     Route: 042
     Dates: start: 20230321
  10. FLUOROURACIL [Suspect]
     Active Substance: FLUOROURACIL
     Indication: Colon cancer stage III
     Dosage: 400MG/M2 IV (BOLUS) ON DAY 1
     Route: 040
     Dates: start: 20230112
  11. FLUOROURACIL [Suspect]
     Active Substance: FLUOROURACIL
     Dosage: 400MG/M2 IV (BOLUS) ON DAY 1
     Route: 040
     Dates: start: 20230221
  12. FLUOROURACIL [Suspect]
     Active Substance: FLUOROURACIL
     Dosage: 400MG/M2 IV (BOLUS) ON DAY 1
     Route: 040
     Dates: start: 20230321

REACTIONS (1)
  - Neutrophil count decreased [Unknown]

NARRATIVE: CASE EVENT DATE: 20230130
